FAERS Safety Report 23851464 (Version 3)
Quarter: 2025Q3

REPORT INFORMATION
  Report Type: Report from Study
  Country: CA (occurrence: CA)
  Receive Date: 20240514
  Receipt Date: 20250908
  Transmission Date: 20251021
  Serious: Yes (Other)
  Sender: SANDOZ
  Company Number: CA-SANDOZ-SDZ2024CA047897

PATIENT
  Sex: Female

DRUGS (1)
  1. HYRIMOZ [Suspect]
     Active Substance: ADALIMUMAB-ADAZ
     Indication: Crohn^s disease
     Dosage: 40MG SC BIWEEKLY;EVERY TWO WEEKS
     Route: 058
     Dates: start: 20210901

REACTIONS (3)
  - Crohn^s disease [Unknown]
  - Social problem [Unknown]
  - Arthralgia [Unknown]
